FAERS Safety Report 8827548 (Version 1)
Quarter: 2012Q4

REPORT INFORMATION
  Report Type: 
  Country: US (occurrence: US)
  Receive Date: 20121008
  Receipt Date: 20121008
  Transmission Date: 20130627
  Serious: Yes (Hospitalization)
  Sender: FDA-Public Use
  Company Number: US-BAYER-2012-102838

PATIENT
  Age: 41 Year
  Sex: Female
  Weight: 63.95 kg

DRUGS (13)
  1. YAZ [Suspect]
  2. MECLIZINE [Concomitant]
     Indication: DIZZINESS
     Dosage: 25 mg, TID PRN
     Route: 048
     Dates: start: 20090820
  3. NAPROSYN [Concomitant]
     Indication: INFLAMMATION
     Dosage: 500 mg, BID
     Route: 048
     Dates: start: 20090820
  4. NAPROSYN [Concomitant]
     Indication: PAIN
     Dosage: 500 mg, BID
     Route: 048
     Dates: start: 20090919
  5. DIFLUCAN [Concomitant]
     Indication: VAGINAL INFECTION
     Dosage: 150 mg, UNK
     Route: 048
     Dates: start: 20090919
  6. DIFLUCAN [Concomitant]
     Indication: VAGINAL INFECTION
     Dosage: 150 mg, UNK
     Route: 048
     Dates: start: 20090927
  7. TESSALON PERLE [Concomitant]
     Indication: COUGH
     Dosage: 100 mg, TID
     Route: 048
     Dates: start: 20090927
  8. TYLENOL EXTRA STRENGTH [Concomitant]
     Indication: PYREXIA
     Dosage: 500 mg, Q4HR as needed
     Route: 048
     Dates: start: 20090927
  9. TYLENOL EXTRA STRENGTH [Concomitant]
     Indication: INFLUENZA LIKE ILLNESS
     Dosage: 500 mg, Q4HR as needed
     Route: 048
     Dates: start: 20091005
  10. ZITHROMAX Z-PAK [Concomitant]
     Dosage: 250 mg, 2 tablets on day1, then take 1 tablet on days 2 through 5
     Route: 048
     Dates: start: 20090927
  11. ZITHROMAX Z-PAK [Concomitant]
     Dosage: 250 mg, 2 tablets on day1, then take 1 tablet on days 2 through 5
     Route: 048
     Dates: start: 20091005
  12. PROVENTIL [Concomitant]
     Indication: WHEEZING
     Dosage: 90 ?g/ actuation 1 to 2 puffs every 4 hours as needed
     Dates: start: 20090927
  13. PROVENTIL [Concomitant]
     Indication: WHEEZING
     Dosage: 90 ?g/ actuation 1 to 2 puffs every 4 hours as needed
     Dates: start: 20091005

REACTIONS (1)
  - Pulmonary embolism [None]
